FAERS Safety Report 12067635 (Version 3)
Quarter: 2016Q4

REPORT INFORMATION
  Report Type: Spontaneous
  Country: CA (occurrence: CA)
  Receive Date: 20160211
  Receipt Date: 20161111
  Transmission Date: 20170206
  Serious: Yes (Hospitalization, Other)
  Sender: FDA-Public Use
  Company Number: CA-GLAXOSMITHKLINE-CA2016GSK014360

PATIENT
  Sex: Female

DRUGS (2)
  1. BENLYSTA [Suspect]
     Active Substance: BELIMUMAB
     Indication: SYSTEMIC LUPUS ERYTHEMATOSUS
     Dosage: 650 MG, Z
     Dates: start: 20151120
  2. BENLYSTA [Suspect]
     Active Substance: BELIMUMAB
     Dosage: UNK
     Dates: start: 20160518

REACTIONS (10)
  - Condition aggravated [Recovered/Resolved with Sequelae]
  - Gait disturbance [Unknown]
  - Scar [Not Recovered/Not Resolved]
  - Hepatic enzyme increased [Unknown]
  - Spinal fracture [Unknown]
  - Wound [Recovered/Resolved with Sequelae]
  - Rash [Recovered/Resolved]
  - Mobility decreased [Unknown]
  - Back disorder [Unknown]
  - Swelling [Unknown]
